FAERS Safety Report 13256339 (Version 1)
Quarter: 2017Q1

REPORT INFORMATION
  Report Type: Spontaneous
  Country: US (occurrence: US)
  Receive Date: 20170221
  Receipt Date: 20170221
  Transmission Date: 20170428
  Serious: Yes (Hospitalization)
  Sender: FDA-Public Use
  Company Number: None

PATIENT
  Age: 65 Year
  Sex: Male

DRUGS (2)
  1. OXYCODONE 15 MG [Suspect]
     Active Substance: OXYCODONE
  2. MS CONTIN [Suspect]
     Active Substance: MORPHINE SULFATE

REACTIONS (1)
  - Sedation [None]

NARRATIVE: CASE EVENT DATE: 20150119
